FAERS Safety Report 23624528 (Version 2)
Quarter: 2024Q2

REPORT INFORMATION
  Report Type: Report from Study
  Country: US (occurrence: US)
  Receive Date: 20240313
  Receipt Date: 20240524
  Transmission Date: 20240716
  Serious: Yes (Hospitalization, Other)
  Sender: FDA-Public Use
  Company Number: US-ABBVIE-5673931

PATIENT
  Sex: Female

DRUGS (1)
  1. SKYRIZI [Suspect]
     Active Substance: RISANKIZUMAB-RZAA
     Indication: Crohn^s disease
     Route: 058
     Dates: start: 20231101

REACTIONS (6)
  - Ammonia increased [Not Recovered/Not Resolved]
  - Hepatic steatosis [Unknown]
  - Fluid retention [Unknown]
  - Cerebral disorder [Unknown]
  - Urinary tract disorder [Not Recovered/Not Resolved]
  - Coma [Recovered/Resolved]
